FAERS Safety Report 8589105-1 (Version None)
Quarter: 2012Q3

REPORT INFORMATION
  Report Type: 
  Country: None (occurrence: None)
  Receive Date: 20120813
  Receipt Date: 20120806
  Transmission Date: 20120928
  Serious: Yes (Death)
  Sender: FDA-Public Use
  Company Number: US-ASTELLAS-2012US006717

PATIENT
  Sex: Male

DRUGS (1)
  1. ERLOTINIB HYDROCHLORIDE [Suspect]
     Indication: LUNG CARCINOMA CELL TYPE UNSPECIFIED STAGE 0
     Dosage: 100 MG, UNKNOWN/D
     Route: 048
     Dates: end: 20120731

REACTIONS (2)
  - DEATH [None]
  - INCORRECT DOSE ADMINISTERED [None]
